FAERS Safety Report 23976837 (Version 1)
Quarter: 2024Q2

REPORT INFORMATION
  Report Type: Report from Study
  Country: US (occurrence: US)
  Receive Date: 20240614
  Receipt Date: 20240614
  Transmission Date: 20240715
  Serious: Yes (Other)
  Sender: FDA-Public Use
  Company Number: US-SUN PHARMACEUTICAL INDUSTRIES LTD-2024R1-451229

PATIENT
  Age: 69 Year
  Sex: Male

DRUGS (1)
  1. HYDROXYCHLOROQUINE [Suspect]
     Active Substance: HYDROXYCHLOROQUINE
     Indication: Rheumatoid arthritis
     Dosage: 400 MILLIGRAM, DAILY
     Route: 065

REACTIONS (4)
  - Akinesia [Unknown]
  - Cardiotoxicity [Unknown]
  - Hypokinesia [Unknown]
  - Red blood cell vacuolisation [Unknown]
